FAERS Safety Report 7737423-9 (Version None)
Quarter: 2011Q3

REPORT INFORMATION
  Report Type: 
  Country: None (occurrence: None)
  Receive Date: 20110908
  Receipt Date: 20110830
  Transmission Date: 20111222
  Serious: Yes (Hospitalization)
  Sender: FDA-Public Use
  Company Number: US-GLAXOSMITHKLINE-A0815437A

PATIENT
  Age: 54 Year
  Sex: Male

DRUGS (10)
  1. AVANDAMET [Suspect]
     Indication: DIABETES MELLITUS
     Route: 048
  2. ZANTAC [Concomitant]
  3. CELEBREX [Concomitant]
  4. GLUCOTROL [Concomitant]
  5. LIPITOR [Concomitant]
  6. AVANDIA [Suspect]
     Indication: DIABETES MELLITUS
     Route: 048
  7. LIPITOR [Concomitant]
  8. GLUCOPHAGE [Concomitant]
  9. GLUCOPHAGE [Concomitant]
  10. AMARYL [Concomitant]

REACTIONS (2)
  - MYOCARDIAL INFARCTION [None]
  - CORONARY ARTERY DISEASE [None]
